FAERS Safety Report 6324379-9 (Version None)
Quarter: 2009Q3

REPORT INFORMATION
  Report Type: 
  Country: None (occurrence: None)
  Receive Date: 20090824
  Receipt Date: 20090514
  Transmission Date: 20100115
  Serious: No
  Sender: FDA-Public Use
  Company Number: US-ABBOTT-09P-163-0573606-00

PATIENT
  Sex: Male
  Weight: 69.462 kg

DRUGS (6)
  1. NIASPAN [Suspect]
     Indication: BLOOD CHOLESTEROL
     Route: 048
     Dates: start: 20090401, end: 20090510
  2. METAMUCIL [Concomitant]
     Indication: SUPPLEMENTATION THERAPY
     Route: 048
  3. COQ10 [Concomitant]
     Indication: CARDIAC DISORDER
     Route: 048
  4. COQ10 [Concomitant]
     Indication: SUPPLEMENTATION THERAPY
  5. LIPITOR [Concomitant]
     Indication: BLOOD CHOLESTEROL
     Route: 048
  6. ASPIRIN [Concomitant]
     Indication: CARDIAC DISORDER
     Route: 048

REACTIONS (3)
  - ARTHRALGIA [None]
  - ILL-DEFINED DISORDER [None]
  - PARAESTHESIA [None]
